FAERS Safety Report 8841956 (Version 1)
Quarter: 2012Q4

REPORT INFORMATION
  Report Type: Spontaneous
  Country: US (occurrence: None)
  Receive Date: 20121015
  Receipt Date: 20121015
  Transmission Date: 20130627
  Serious: Yes (Other)
  Sender: FDA-Public Use
  Company Number: None

PATIENT
  Age: 50 Year
  Sex: Female
  Weight: 63.5 kg

DRUGS (1)
  1. HALOPERIDOL [Suspect]
     Dosage: Shot 1 month Pills 1 daily
     Dates: start: 20120815, end: 20120930

REACTIONS (7)
  - Restlessness [None]
  - Akathisia [None]
  - Insomnia [None]
  - Fatigue [None]
  - Muscle twitching [None]
  - Choking [None]
  - Unevaluable event [None]
